FAERS Safety Report 25953444 (Version 1)
Quarter: 2025Q4

REPORT INFORMATION
  Report Type: Spontaneous
  Country: US (occurrence: None)
  Receive Date: 20251023
  Receipt Date: 20251023
  Transmission Date: 20260117
  Serious: Yes (Other)
  Sender: FDA-CTU
  Company Number: None

PATIENT
  Age: 17 Year
  Sex: Female
  Weight: 64.7 kg

DRUGS (3)
  1. MIRTAZAPINE [Suspect]
     Active Substance: MIRTAZAPINE
     Indication: Depression
     Dosage: FREQUENCY : AT BEDTIME;?
     Route: 048
     Dates: start: 20250707, end: 20250728
  2. mirtazapine 15mg po QHS [Concomitant]
     Dates: start: 20250609, end: 20250728
  3. mirtazapine 22.5mg po QHS [Concomitant]
     Dates: start: 20250707, end: 20250728

REACTIONS (2)
  - Neutrophil count decreased [None]
  - Therapy cessation [None]

NARRATIVE: CASE EVENT DATE: 20250715
